FAERS Safety Report 21118966 (Version 1)
Quarter: 2022Q3

REPORT INFORMATION
  Report Type: Spontaneous
  Country: US (occurrence: None)
  Receive Date: 20220721
  Receipt Date: 20220721
  Transmission Date: 20221026
  Serious: No
  Sender: FDA-Public Use
  Company Number: None

PATIENT
  Age: 58 Year
  Sex: Male

DRUGS (1)
  1. REMDESIVIR [Suspect]
     Active Substance: REMDESIVIR
     Indication: COVID-19
     Dates: start: 20220303, end: 20220303

REACTIONS (3)
  - Hypersensitivity [None]
  - Infusion related reaction [None]
  - Hypotension [None]

NARRATIVE: CASE EVENT DATE: 20220303
